FAERS Safety Report 5587697-8 (Version None)
Quarter: 2007Q4

REPORT INFORMATION
  Report Type: 
  Country: None (occurrence: None)
  Receive Date: 20071206
  Receipt Date: 20071030
  Transmission Date: 20080405
  Serious: Yes (Hospitalization, Other)
  Sender: FDA-Public Use
  Company Number: 42347

PATIENT
  Age: 18 Year
  Sex: Male
  Weight: 94 kg

DRUGS (3)
  1. METHOTREXATE [Suspect]
     Indication: BONE SARCOMA
     Dosage: 20G/IV
     Route: 042
     Dates: start: 20071026
  2. METHOTREXATE [Suspect]
     Dosage: 20G/IV
     Route: 042
     Dates: start: 20071026
  3. SODIUM BICARBONATE, ZORFRAN [Concomitant]

REACTIONS (3)
  - BLOOD CREATINE INCREASED [None]
  - MUCOSAL INFLAMMATION [None]
  - STOMATITIS [None]
